FAERS Safety Report 16584902 (Version 1)
Quarter: 2019Q3

REPORT INFORMATION
  Report Type: Report from Study
  Country: GB (occurrence: GB)
  Receive Date: 20190717
  Receipt Date: 20190717
  Transmission Date: 20191004
  Serious: Yes (Hospitalization)
  Sender: FDA-Public Use
  Company Number: PHHY2019GB162741

PATIENT
  Sex: Male

DRUGS (1)
  1. COSENTYX [Suspect]
     Active Substance: SECUKINUMAB
     Indication: PSORIASIS
     Dosage: 300 MG, QMO
     Route: 058
     Dates: start: 20180619

REACTIONS (10)
  - Decreased immune responsiveness [Unknown]
  - Internal haemorrhage [Unknown]
  - Infection [Unknown]
  - Rib fracture [Unknown]
  - Feeding disorder [Unknown]
  - Psoriasis [Unknown]
  - Fall [Unknown]
  - Vascular injury [Unknown]
  - Pneumonia [Unknown]
  - Gait inability [Unknown]
